FAERS Safety Report 9773121 (Version 1)
Quarter: 2013Q4

REPORT INFORMATION
  Report Type: Spontaneous
  Country: US (occurrence: None)
  Receive Date: 20131217
  Receipt Date: 20131217
  Transmission Date: 20140711
  Serious: Yes (Other)
  Sender: FDA-Public Use
  Company Number: 2013P1021740

PATIENT
  Age: 70 Year
  Sex: Male

DRUGS (2)
  1. DILTIAZEM [Suspect]
     Route: 042
  2. ENOXAPARIN [Concomitant]

REACTIONS (13)
  - Acute hepatic failure [None]
  - Hypotension [None]
  - Epistaxis [None]
  - Thrombocytopenia [None]
  - Moraxella test positive [None]
  - Sputum culture positive [None]
  - Pneumonia [None]
  - Aortic valve incompetence [None]
  - Tricuspid valve incompetence [None]
  - Mitral valve incompetence [None]
  - Hepatitis [None]
  - Renal failure acute [None]
  - Hypoxia [None]
